FAERS Safety Report 18610641 (Version 1)
Quarter: 2020Q4

REPORT INFORMATION
  Report Type: Spontaneous
  Country: US (occurrence: US)
  Receive Date: 20201211
  Receipt Date: 20201211
  Transmission Date: 20210114
  Serious: No
  Sender: FDA-Public Use
  Company Number: None

PATIENT
  Age: 28 Year
  Sex: Female
  Weight: 47.25 kg

DRUGS (1)
  1. SULFAMETHOXAZOLE-TRIMETHOPRIM 800MG-160MG [Suspect]
     Active Substance: SULFAMETHOXAZOLE\TRIMETHOPRIM
     Indication: CYSTITIS
     Dosage: ?          QUANTITY:14 TABLET(S);?
     Route: 048
     Dates: start: 20201119, end: 20201125

REACTIONS (5)
  - Loss of personal independence in daily activities [None]
  - Disturbance in attention [None]
  - Memory impairment [None]
  - Photophobia [None]
  - Confusional state [None]

NARRATIVE: CASE EVENT DATE: 20201123
